FAERS Safety Report 8281987-6 (Version None)
Quarter: 2012Q2

REPORT INFORMATION
  Report Type: 
  Country: None (occurrence: None)
  Receive Date: 20120410
  Receipt Date: 20120328
  Transmission Date: 20120825
  Serious: Yes (Death)
  Sender: FDA-Public Use
  Company Number: ADR-2011-11247

PATIENT

DRUGS (1)
  1. LIORESAL [Suspect]
     Indication: MUSCLE SPASTICITY
     Dosage: MCG, DAILY, INTRATH
     Route: 037

REACTIONS (5)
  - MUSCLE SPASTICITY [None]
  - DRUG WITHDRAWAL SYNDROME [None]
  - HYPOTHERMIA [None]
  - CONDITION AGGRAVATED [None]
  - CARDIO-RESPIRATORY ARREST [None]
